FAERS Safety Report 4876585-8 (Version None)
Quarter: 2005Q4

REPORT INFORMATION
  Report Type: 
  Country: None (occurrence: None)
  Receive Date: 20051206
  Receipt Date: 20050912
  Transmission Date: 20060501
  Serious: No
  Sender: FDA-Public Use
  Company Number: USA050599283

PATIENT
  Age: 29 Year
  Sex: Female

DRUGS (2)
  1. CYMBALTA [Suspect]
     Indication: FATIGUE
     Dosage: 30 MG DAY
     Dates: start: 20050520, end: 20050901
  2. CONTRACEPTIVE PILL (ORAL CONTRACEPTIVE NOS) [Concomitant]

REACTIONS (5)
  - COUGH [None]
  - DIZZINESS [None]
  - HEADACHE [None]
  - NASOPHARYNGITIS [None]
  - RHINORRHOEA [None]
